FAERS Safety Report 8994959 (Version 1)
Quarter: 2012Q4

REPORT INFORMATION
  Report Type: Spontaneous
  Country: US (occurrence: None)
  Receive Date: 20121228
  Receipt Date: 20121228
  Transmission Date: 20130627
  Serious: No
  Sender: FDA-Public Use
  Company Number: None

PATIENT
  Age: 55 Year
  Sex: Male
  Weight: 96 kg

DRUGS (1)
  1. DIVALPROEX SODIUM [Suspect]

REACTIONS (1)
  - Hyponatraemia [None]
